FAERS Safety Report 6722011-3 (Version None)
Quarter: 2010Q2

REPORT INFORMATION
  Report Type: 
  Country: None (occurrence: None)
  Receive Date: 20100512
  Receipt Date: 20100428
  Transmission Date: 20101027
  Serious: Yes (Hospitalization, Other)
  Sender: FDA-Public Use
  Company Number: PHEH2006US10887

PATIENT
  Sex: Female
  Weight: 77.097 kg

DRUGS (25)
  1. ZOMETA [Suspect]
     Indication: METASTASES TO BONE
     Dosage: 4MG Q4WK
     Dates: start: 20030425, end: 20060401
  2. AREDIA [Suspect]
  3. ZOLADEX [Concomitant]
     Indication: METASTASES TO BONE
     Dosage: 3.6-10.8MG Q3MO
     Route: 058
     Dates: start: 20030425
  4. XELODA [Concomitant]
     Indication: BREAST CANCER
     Dates: start: 20030721
  5. HERCEPTIN [Concomitant]
     Indication: BREAST CANCER
     Dosage: 55MG UNK
     Route: 042
     Dates: start: 20031016
  6. FEMARA [Concomitant]
     Indication: BREAST CANCER
     Dosage: 2.5MG QD
     Route: 048
     Dates: start: 20031121
  7. PROCRIT                            /00909301/ [Concomitant]
     Indication: ANAEMIA
     Dosage: 40,000 UNITS WK FOR 4 WKS
     Route: 058
     Dates: start: 20040212
  8. NAVELBINE [Concomitant]
     Indication: BREAST CANCER
     Dosage: UNK WKLY X4WK
     Route: 042
     Dates: start: 20031001
  9. CHEMOTHERAPEUTICS NOS [Concomitant]
     Indication: BREAST CANCER
  10. TAMOXIFEN CITRATE [Concomitant]
  11. PERCOCET [Concomitant]
     Dosage: UNK
  12. IRON SUPPLEMENTS [Concomitant]
     Dosage: UNK
  13. KEFLEX [Concomitant]
  14. IBUPROFEN [Concomitant]
  15. ASPIRIN [Concomitant]
  16. TRASTUZUMAB [Concomitant]
  17. ACETAMINOPHEN [Concomitant]
  18. DIPHENHYDRAMINE [Concomitant]
  19. MEPERIDINE HCL [Concomitant]
  20. LOVENOX [Concomitant]
  21. OXYCONTIN [Concomitant]
  22. NEUPOGEN [Concomitant]
  23. PEPCID [Concomitant]
  24. COLACE [Concomitant]
  25. BEXTRA [Concomitant]

REACTIONS (39)
  - ACUTE SINUSITIS [None]
  - ANAEMIA [None]
  - ANXIETY [None]
  - ARTHRALGIA [None]
  - BONE DISORDER [None]
  - BONE PAIN [None]
  - CELLULITIS [None]
  - CENTRAL VENOUS CATHETERISATION [None]
  - CERVIX INFLAMMATION [None]
  - DEBRIDEMENT [None]
  - DENTAL CARIES [None]
  - DIVERTICULUM INTESTINAL [None]
  - ENDODONTIC PROCEDURE [None]
  - FRACTURE NONUNION [None]
  - GRANULOMA [None]
  - HEPATIC CYST [None]
  - HIP ARTHROPLASTY [None]
  - HIP SURGERY [None]
  - INJURY [None]
  - LUNG NEOPLASM [None]
  - MEDICAL DEVICE REMOVAL [None]
  - METASTATIC NEOPLASM [None]
  - NEUTROPENIA [None]
  - NUCLEAR MAGNETIC RESONANCE IMAGING ABNORMAL [None]
  - OPEN REDUCTION OF FRACTURE [None]
  - OSTEOARTHRITIS [None]
  - OSTEONECROSIS [None]
  - OSTEONECROSIS OF JAW [None]
  - OSTEOSCLEROSIS [None]
  - PAIN [None]
  - PAIN IN JAW [None]
  - SEQUESTRECTOMY [None]
  - SINUS DISORDER [None]
  - SINUS HEADACHE [None]
  - SPINAL OSTEOARTHRITIS [None]
  - SPLENOMEGALY [None]
  - TOOTH DISORDER [None]
  - TOOTH EXTRACTION [None]
  - WOUND INFECTION STAPHYLOCOCCAL [None]
